FAERS Safety Report 20046007 (Version 1)
Quarter: 2021Q4

REPORT INFORMATION
  Report Type: Spontaneous
  Country: US (occurrence: None)
  Receive Date: 20211108
  Receipt Date: 20211108
  Transmission Date: 20220304
  Serious: No
  Sender: FDA-Public Use
  Company Number: None

PATIENT
  Age: 9 Month
  Weight: 8.73 kg

DRUGS (2)
  1. INFANTS TYLENOL [Suspect]
     Active Substance: ACETAMINOPHEN
     Indication: Teething
     Dosage: OTHER QUANTITY : 5 MILLILITERS;?
     Route: 048
     Dates: start: 20211104, end: 20211108
  2. VITAMIN D [Concomitant]
     Active Substance: VITAMIN D NOS

REACTIONS (1)
  - Perioral dermatitis [None]

NARRATIVE: CASE EVENT DATE: 20211108
